FAERS Safety Report 6525761-7 (Version None)
Quarter: 2010Q1

REPORT INFORMATION
  Report Type: 
  Country: None (occurrence: None)
  Receive Date: 20100104
  Receipt Date: 20091221
  Transmission Date: 20100710
  Serious: Yes (Death)
  Sender: FDA-Public Use
  Company Number: JP-SANOFI-AVENTIS-F01200900839

PATIENT
  Age: 86 Year
  Sex: Male
  Weight: 65 kg

DRUGS (7)
  1. CLOPIDOGREL BISULFATE [Suspect]
     Indication: ACUTE CORONARY SYNDROME
     Dosage: DOSE TEXT: STARTING DOSE
     Route: 048
     Dates: start: 20090306, end: 20090306
  2. CLOPIDOGREL BISULFATE [Suspect]
     Dosage: DOSE TEXT: STARTING DOSE
     Route: 048
     Dates: start: 20090306, end: 20090306
  3. CLOPIDOGREL BISULFATE [Suspect]
     Dosage: DOSE TEXT: MAINTENANCE DOSE
     Route: 048
     Dates: start: 20090307, end: 20090318
  4. CLOPIDOGREL BISULFATE [Suspect]
     Dosage: DOSE TEXT: MAINTENANCE DOSE
     Route: 048
     Dates: start: 20090307, end: 20090318
  5. ASPIRIN [Concomitant]
     Route: 048
     Dates: start: 20090307, end: 20090325
  6. AMLODIPINE [Concomitant]
     Route: 048
     Dates: end: 20090325
  7. BLOPRESS [Concomitant]
     Route: 048
     Dates: end: 20090325

REACTIONS (2)
  - BRAIN CONTUSION [None]
  - TRAUMATIC HAEMORRHAGE [None]
